FAERS Safety Report 7634656 (Version 3)
Quarter: 2017Q1

REPORT INFORMATION
  Report Type: Report from Study
  Country: DE (occurrence: DE)
  Receive Date: 20101020
  Receipt Date: 20170324
  Transmission Date: 20170429
  Serious: Yes (Hospitalization)
  Sender: FDA-Public Use
  Company Number: DE-SANOFI-AVENTIS-2010SA043257

PATIENT
  Age: 61 Year
  Sex: Female
  Weight: 90.5 kg

DRUGS (2)
  1. GRANOCYTE [Concomitant]
     Active Substance: LENOGRASTIM
     Indication: PROPHYLAXIS
     Dosage: DOSE:34 MIO.I.E
     Route: 058
     Dates: start: 20100719, end: 20100723
  2. DOCETAXEL. [Suspect]
     Active Substance: DOCETAXEL
     Indication: BREAST CANCER
     Dosage: DAILY DOSE: 160 MG
     Route: 041
     Dates: start: 20100714, end: 20100714

REACTIONS (5)
  - Generalised oedema [Recovered/Resolved with Sequelae]
  - Ascites [Recovered/Resolved with Sequelae]
  - Blood bilirubin increased [Recovered/Resolved with Sequelae]
  - Jaundice [Recovered/Resolved with Sequelae]
  - Hepatic cirrhosis [Recovered/Resolved with Sequelae]

NARRATIVE: CASE EVENT DATE: 20100723
